FAERS Safety Report 5640226-2 (Version None)
Quarter: 2008Q1

REPORT INFORMATION
  Report Type: 
  Country: None (occurrence: None)
  Receive Date: 20080225
  Receipt Date: 20080204
  Transmission Date: 20080703
  Serious: Yes (Death, Hospitalization)
  Sender: FDA-Public Use
  Company Number: 008-C5013-07070923

PATIENT
  Age: 72 Year
  Sex: Male
  Weight: 79 kg

DRUGS (22)
  1. CC-5013 (LENALIDOMIDE) (CAPSULES) [Suspect]
     Indication: MULTIPLE MYELOMA
     Dosage: 25 MG, FOR 21 DAYS, ORAL
     Route: 048
     Dates: start: 20070515, end: 20070725
  2. DEXAMETHASONE TAB [Suspect]
     Indication: MULTIPLE MYELOMA
     Dosage: 40 MG, DAYS 1-4, 9-12, 17-20, ORAL
     Route: 048
     Dates: start: 20070515, end: 20070721
  3. INDOMETHACIN [Concomitant]
  4. IRBESARTAN [Concomitant]
  5. POTASSIUM CHLORIDE [Concomitant]
  6. MEPERIDINE HCL [Concomitant]
  7. LASIX [Concomitant]
  8. MIDAZOLAM HCL [Concomitant]
  9. AMIODARONE HCL [Concomitant]
  10. CALCIUM GLUCONATE (CALCIUM GLUCONATE) (AMPOULES) [Concomitant]
  11. RAMIPRIL [Concomitant]
  12. MORPHINE [Concomitant]
  13. MAGNESIUM SULFATE [Concomitant]
  14. ISOPTIN [Concomitant]
  15. KARVEZIDE (KARVEA HCT) (TABLETS) [Concomitant]
  16. NEXIUM [Concomitant]
  17. ACETAMINOPHEN [Concomitant]
  18. TEMAZEPAM [Concomitant]
  19. FENTANYL [Concomitant]
  20. NILSTAT [Concomitant]
  21. EFFEXOR [Concomitant]
  22. LACRITUBE (LACRI-LUBE) (OINTMENT) [Concomitant]

REACTIONS (8)
  - ALVEOLITIS [None]
  - BACTERIAL SEPSIS [None]
  - DEVICE RELATED INFECTION [None]
  - INTERSTITIAL LUNG DISEASE [None]
  - PNEUMOCYSTIS JIROVECI PNEUMONIA [None]
  - PYREXIA [None]
  - RETROPERITONEAL HAEMORRHAGE [None]
  - SUBCLAVIAN VEIN THROMBOSIS [None]
